FAERS Safety Report 4703492-3 (Version None)
Quarter: 2005Q2

REPORT INFORMATION
  Report Type: 
  Country: None (occurrence: None)
  Receive Date: 20050628
  Receipt Date: 20050613
  Transmission Date: 20051028
  Serious: Yes (Hospitalization, Other)
  Sender: FDA-Public Use
  Company Number: USA050393167

PATIENT
  Age: 84 Year
  Sex: Female

DRUGS (6)
  1. FORTEO [Suspect]
     Dates: start: 20040101
  2. COUMADIN [Concomitant]
  3. SYNTHROID [Concomitant]
  4. DIGITEX (DIGOXIN) [Concomitant]
  5. ATENOLOL [Concomitant]
  6. PAROXETINE HCL [Concomitant]

REACTIONS (3)
  - ABDOMINAL ADHESIONS [None]
  - PHARMACEUTICAL PRODUCT COMPLAINT [None]
  - SMALL INTESTINAL OBSTRUCTION [None]
